FAERS Safety Report 7304547-X (Version None)
Quarter: 2011Q1

REPORT INFORMATION
  Report Type: 
  Country: None (occurrence: None)
  Receive Date: 20110222
  Receipt Date: 20101025
  Transmission Date: 20110831
  Serious: Yes (Other)
  Sender: FDA-Public Use
  Company Number: PHBS2007US08860

PATIENT
  Age: 27 Year
  Sex: Female

DRUGS (2)
  1. RED BLOOD CELLS [Concomitant]
  2. DESFERRIOXAMINE MESYLATE [Suspect]
     Indication: HAEMOSIDEROSIS
     Dosage: 2.5 G 5 DAYS A WEEK
     Route: 058
     Dates: start: 20000901

REACTIONS (5)
  - SERUM FERRITIN INCREASED [None]
  - PREMATURE LABOUR [None]
  - DRUG EXPOSURE DURING PREGNANCY [None]
  - HAEMOGLOBIN DECREASED [None]
  - PLACENTA PRAEVIA [None]
